FAERS Safety Report 8283000-3 (Version None)
Quarter: 2012Q2

REPORT INFORMATION
  Report Type: 
  Country: None (occurrence: None)
  Receive Date: 20120413
  Receipt Date: 20120220
  Transmission Date: 20120825
  Serious: Yes (Disabling)
  Sender: FDA-Public Use
  Company Number: US-ROCHE-1051459

PATIENT
  Sex: Female
  Weight: 84.444 kg

DRUGS (6)
  1. DILTIAZEM HCL [Concomitant]
  2. SPIRIVA [Concomitant]
     Indication: ASTHMA
  3. PREDNISONE TAB [Concomitant]
     Indication: ASTHMA
  4. XOPENEX [Concomitant]
     Indication: ASTHMA
  5. PROAIR HFA [Concomitant]
     Indication: ASTHMA
  6. OMALIZUMAB [Suspect]
     Indication: ASTHMA
     Route: 058
     Dates: start: 20060201

REACTIONS (2)
  - UPPER LIMB FRACTURE [None]
  - ASTHMA [None]
